FAERS Safety Report 5657645-0 (Version None)
Quarter: 2008Q1

REPORT INFORMATION
  Report Type: 
  Country: None (occurrence: None)
  Receive Date: 20080305
  Receipt Date: 20080222
  Transmission Date: 20080703
  Serious: Yes (Hospitalization, Other)
  Sender: FDA-Public Use
  Company Number: 6574

PATIENT
  Age: 60 Year
  Sex: Female

DRUGS (5)
  1. METHYLENE BLUE [Suspect]
     Indication: PARATHYROIDECTOMY
     Dosage: 7.5 MG/KG ONCE IV
     Route: 042
  2. FLUOXETINE [Concomitant]
  3. DEXTROPROPDXYPHENE/ PARACETAMOL [Concomitant]
  4. BECLAMETHASONE [Concomitant]
  5. PROPOFOL [Concomitant]

REACTIONS (25)
  - AGGRESSION [None]
  - AGITATION [None]
  - BLOOD METHAEMOGLOBIN PRESENT [None]
  - CHROMATURIA [None]
  - DYSKINESIA [None]
  - EXTENSOR PLANTAR RESPONSE [None]
  - FLUSHING [None]
  - GLASGOW COMA SCALE ABNORMAL [None]
  - HAEMODILUTION [None]
  - HAEMOGLOBIN DECREASED [None]
  - HYPERHIDROSIS [None]
  - HYPERTONIA [None]
  - INFUSION RELATED REACTION [None]
  - LABORATORY TEST INTERFERENCE [None]
  - MUSCLE RIGIDITY [None]
  - MYDRIASIS [None]
  - NEUROLOGICAL SYMPTOM [None]
  - NYSTAGMUS [None]
  - PARATHYROIDECTOMY [None]
  - POST PROCEDURAL COMPLICATION [None]
  - PUPILLARY REFLEX IMPAIRED [None]
  - RESPIRATORY ACIDOSIS [None]
  - SKIN DISCOLOURATION [None]
  - SPEECH DISORDER [None]
  - VOMITING [None]
